FAERS Safety Report 12736807 (Version 1)
Quarter: 2016Q3

REPORT INFORMATION
  Report Type: Spontaneous
  Country: CH (occurrence: CH)
  Receive Date: 20160912
  Receipt Date: 20160912
  Transmission Date: 20161109
  Serious: Yes (Other)
  Sender: FDA-Public Use
  Company Number: CH-TEVA-690117ISR

PATIENT
  Age: 40 Year
  Sex: Female

DRUGS (5)
  1. ANTABUS [Suspect]
     Active Substance: DISULFIRAM
     Indication: ALCOHOLISM
     Dosage: DOSE UNKNOWN, START DATE UNKNOWN BUT PRIOR TO CONCEPTION
     Route: 065
     Dates: end: 20150914
  2. RIVOTRIL [Suspect]
     Active Substance: CLONAZEPAM
     Indication: IDIOPATHIC GENERALISED EPILEPSY
     Dosage: 1 MILLIGRAM DAILY;
     Route: 065
     Dates: start: 20150922
  3. FOLIC ACID. [Concomitant]
     Active Substance: FOLIC ACID
     Indication: PROPHYLAXIS OF NEURAL TUBE DEFECT
     Dosage: 5 MILLIGRAM DAILY;
     Route: 065
     Dates: start: 20150919
  4. DOLOPHINE [Suspect]
     Active Substance: METHADONE HYDROCHLORIDE
     Indication: DRUG WITHDRAWAL SYNDROME
     Dosage: 80 MILLIGRAM DAILY; START DATE UNKNOWN BUT PRIOR TO CONCEPTION, ONGOING
     Route: 065
  5. DEPAKINE CHRONO 500 MG [Suspect]
     Active Substance: VALPROIC ACID
     Indication: IDIOPATHIC GENERALISED EPILEPSY
     Dosage: 1000 MILLIGRAM DAILY; STRENGHT: 145MG/333MG; START DATE UNKNOWN BUT PRIOR TO CONCEPTION
     Route: 048
     Dates: end: 20150922

REACTIONS (2)
  - Exposure during pregnancy [Recovered/Resolved]
  - Abortion spontaneous [Recovered/Resolved]

NARRATIVE: CASE EVENT DATE: 2015
